FAERS Safety Report 6140580-1 (Version None)
Quarter: 2009Q2

REPORT INFORMATION
  Report Type: 
  Country: None (occurrence: None)
  Receive Date: 20090402
  Receipt Date: 20090326
  Transmission Date: 20091009
  Serious: Yes (Other)
  Sender: FDA-Public Use
  Company Number: US-SP-2008-00971

PATIENT

DRUGS (3)
  1. BOTULISM AB [Suspect]
     Indication: IMMUNISATION
     Route: 065
  2. BOTULISM AB [Suspect]
     Route: 065
  3. BOTULISM ANTITOXIN ABE [Suspect]
     Indication: IMMUNISATION
     Route: 065

REACTIONS (7)
  - ADVERSE EVENT [None]
  - CHILLS [None]
  - HYPERSENSITIVITY [None]
  - OEDEMA [None]
  - PYREXIA [None]
  - RASH [None]
  - URTICARIA [None]
